FAERS Safety Report 20845349 (Version 2)
Quarter: 2024Q2

REPORT INFORMATION
  Report Type: Report from Study
  Country: CA (occurrence: CA)
  Receive Date: 20220518
  Receipt Date: 20240624
  Transmission Date: 20240715
  Serious: Yes (Other)
  Sender: FDA-Public Use
  Company Number: CA-JNJFOC-20220505604

PATIENT
  Age: 75 Year
  Sex: Male
  Weight: 75 kg

DRUGS (4)
  1. REMICADE [Suspect]
     Active Substance: INFLIXIMAB
     Indication: Crohn^s disease
     Dosage: 30-OCT-2024- EXPIRY, 5 MG/KG
     Route: 042
     Dates: start: 20211130
  2. REMICADE [Suspect]
     Active Substance: INFLIXIMAB
     Dosage: 750 MG
     Route: 042
     Dates: start: 20220510
  3. REMICADE [Suspect]
     Active Substance: INFLIXIMAB
     Dosage: 700 MG
     Route: 041
  4. PREDNISONE [Concomitant]
     Active Substance: PREDNISONE
     Indication: Product used for unknown indication
     Dosage: TAPER BY 5 MG ONCE 2 WEEKS
     Route: 065

REACTIONS (6)
  - Sepsis [Unknown]
  - Colitis [Unknown]
  - Anal fistula [Not Recovered/Not Resolved]
  - Drug level decreased [Unknown]
  - Off label use [Unknown]
  - Product use issue [Unknown]

NARRATIVE: CASE EVENT DATE: 20220510
